FAERS Safety Report 8581960 (Version 2)
Quarter: 2013Q3

REPORT INFORMATION
  Report Type: Report from Study
  Country: MX (occurrence: MX)
  Receive Date: 20120528
  Receipt Date: 20130721
  Transmission Date: 20140515
  Serious: Yes (Hospitalization)
  Sender: FDA-Public Use
  Company Number: PHHY2012MX038330

PATIENT
  Age: 71 Year
  Sex: Male

DRUGS (5)
  1. ONBREZ [Suspect]
     Indication: CHRONIC OBSTRUCTIVE PULMONARY DISEASE
     Dosage: 250 UG, UNK
     Dates: start: 201106
  2. SPIRIVA [Suspect]
     Indication: CHRONIC OBSTRUCTIVE PULMONARY DISEASE
     Dosage: 1 DF, QD
     Dates: start: 201106
  3. SINTROM [Concomitant]
     Dates: start: 2006
  4. TEOLONG [Concomitant]
     Dosage: 1 DF, UNK
     Dates: start: 201103
  5. VALPROATE MAGNESIUM (ATEMPERATOR LP) [Concomitant]
     Indication: NERVOUS SYSTEM DISORDER
     Dosage: 1 DF, QD
     Dates: start: 201106

REACTIONS (2)
  - Cerebrovascular accident [Recovered/Resolved]
  - Empyema [Recovered/Resolved]
